FAERS Safety Report 10528506 (Version 1)
Quarter: 2014Q4

REPORT INFORMATION
  Report Type: Spontaneous
  Country: US (occurrence: US)
  Receive Date: 20141020
  Receipt Date: 20141020
  Transmission Date: 20150528
  Serious: No
  Sender: FDA-Public Use
  Company Number: US-009507513-1410USA005730

PATIENT
  Sex: Male
  Weight: 137.87 kg

DRUGS (3)
  1. VICTRELIS [Suspect]
     Active Substance: BOCEPREVIR
  2. PEGASYS [Suspect]
     Active Substance: PEGINTERFERON ALFA-2A
  3. RIBASPHERE [Suspect]
     Active Substance: RIBAVIRIN

REACTIONS (4)
  - Tinnitus [Unknown]
  - Syncope [Unknown]
  - Nausea [Unknown]
  - Asthenia [Unknown]
